FAERS Safety Report 4334608-9 (Version None)
Quarter: 2004Q1

REPORT INFORMATION
  Report Type: 
  Country: None (occurrence: None)
  Receive Date: 20040329
  Receipt Date: 20031229
  Transmission Date: 20041129
  Serious: No
  Sender: FDA-Public Use
  Company Number: 03P-163-0245978-00

PATIENT
  Age: 65 Year
  Sex: Female
  Weight: 67.1324 kg

DRUGS (11)
  1. HUMIRA [Suspect]
     Indication: RHEUMATOID ARTHRITIS
     Dosage: 40 MG, 1 IN 2 WK, SUBCUTANEOUS
     Route: 058
     Dates: start: 20031127
  2. WARFARIN SODIUM [Concomitant]
  3. FUROSEMIDE [Concomitant]
  4. KCL TAB [Concomitant]
  5. AMLODIPINE BESYLATE [Concomitant]
  6. PREDNISONE [Concomitant]
  7. METOPROLOL [Concomitant]
  8. MORPHINE [Concomitant]
  9. OXYCODONE [Concomitant]
  10. LORAZEPAM [Concomitant]
  11. CONSTULOSE [Concomitant]

REACTIONS (2)
  - DYSPHAGIA [None]
  - RASH [None]
